FAERS Safety Report 23530768 (Version 1)
Quarter: 2024Q1

REPORT INFORMATION
  Report Type: Spontaneous
  Country: KR (occurrence: None)
  Receive Date: 20240216
  Receipt Date: 20240216
  Transmission Date: 20240410
  Serious: Yes (Death)
  Sender: FDA-Public Use
  Company Number: 2024A039339

PATIENT
  Age: 3571 Week
  Sex: Female

DRUGS (3)
  1. IMFINZI [Suspect]
     Active Substance: DURVALUMAB
  2. IMFINZI [Suspect]
     Active Substance: DURVALUMAB
     Dosage: 500MG / 3VIAL
     Dates: start: 20231204
  3. IMFINZI [Suspect]
     Active Substance: DURVALUMAB
     Dosage: 500MG / 3VIAL
     Dates: start: 20231228

REACTIONS (1)
  - Gallbladder cancer [Fatal]
